FAERS Safety Report 8443916-1 (Version None)
Quarter: 2012Q2

REPORT INFORMATION
  Report Type: 
  Country: None (occurrence: None)
  Receive Date: 20120618
  Receipt Date: 20120611
  Transmission Date: 20120825
  Serious: Yes (Other)
  Sender: FDA-Public Use
  Company Number: US-BAYER-2012-058510

PATIENT
  Age: 14 Year
  Sex: Female

DRUGS (2)
  1. ACCUTANE [Concomitant]
     Indication: ACNE
  2. YAZ [Suspect]
     Indication: ACNE
     Dosage: UNK
     Dates: start: 20090601, end: 20100120

REACTIONS (13)
  - CHOLELITHIASIS [None]
  - NERVOUS SYSTEM DISORDER [None]
  - BILIARY COLIC [None]
  - PAIN [None]
  - ANHEDONIA [None]
  - VISUAL IMPAIRMENT [None]
  - INJURY [None]
  - FEAR [None]
  - TREMOR [None]
  - ABDOMINAL PAIN [None]
  - GENERAL PHYSICAL HEALTH DETERIORATION [None]
  - CYST RUPTURE [None]
  - ANXIETY [None]
